FAERS Safety Report 14617796 (Version 2)
Quarter: 2018Q1

REPORT INFORMATION
  Report Type: Spontaneous
  Country: BE (occurrence: BE)
  Receive Date: 20180309
  Receipt Date: 20180323
  Transmission Date: 20180509
  Serious: Yes (Other)
  Sender: FDA-Public Use
  Company Number: BE-MERCK KGAA-2043426

PATIENT
  Age: 34 Year
  Sex: Female

DRUGS (13)
  1. NOVOTHYROX [Suspect]
     Active Substance: LEVOTHYROXINE SODIUM
     Indication: PRODUCT USED FOR UNKNOWN INDICATION
  2. FEROGRAD [Suspect]
     Active Substance: ASCORBIC ACID\FERROUS SULFATE
  3. AUGMENTIN [Suspect]
     Active Substance: AMOXICILLIN\CLAVULANATE POTASSIUM
  4. XOLAIR [Suspect]
     Active Substance: OMALIZUMAB
  5. PANTOMED (PANTOPRAZOLE SODIUM SESQUIHYDRATE) [Suspect]
     Active Substance: PANTOPRAZOLE SODIUM
  6. AERIUS [Suspect]
     Active Substance: DESLORATADINE
  7. TRECLINAX(TRECLIN) [Suspect]
     Active Substance: CLINDAMYCIN PHOSPHATE\TRETINOIN
  8. VENTOLIN [Suspect]
     Active Substance: ALBUTEROL SULFATE
  9. SERETIDE [Suspect]
     Active Substance: FLUTICASONE PROPIONATE\SALMETEROL XINAFOATE
  10. NASONEX [Suspect]
     Active Substance: MOMETASONE FUROATE
  11. CELESTONE [Suspect]
     Active Substance: BETAMETHASONE
  12. CLINDAMYCIN PHOSPHATE. [Suspect]
     Active Substance: CLINDAMYCIN PHOSPHATE
  13. ASPIRIN. [Suspect]
     Active Substance: ASPIRIN

REACTIONS (4)
  - Premature delivery [Recovered/Resolved]
  - Live birth [Recovered/Resolved]
  - Maternal exposure during pregnancy [Recovered/Resolved]
  - Caesarean section [None]

NARRATIVE: CASE EVENT DATE: 20170112
